FAERS Safety Report 16594672 (Version 1)
Quarter: 2019Q3

REPORT INFORMATION
  Report Type: Other
  Country: CA (occurrence: CA)
  Receive Date: 20190718
  Receipt Date: 20190718
  Transmission Date: 20191004
  Serious: Yes (Life-Threatening, Other)
  Sender: FDA-Public Use
  Company Number: CA-APOTEX-2019AP018339

PATIENT
  Age: 44 Year
  Sex: Female
  Weight: 74 kg

DRUGS (2)
  1. DULOXETINE. [Suspect]
     Active Substance: DULOXETINE
     Indication: ANXIETY
     Dosage: 120 MG, QD
     Route: 048
  2. DULOXETINE. [Suspect]
     Active Substance: DULOXETINE
     Indication: DEPRESSION
     Dosage: 60 MG, QD
     Route: 048

REACTIONS (7)
  - Irritability [Unknown]
  - Tremor [Unknown]
  - Nightmare [Unknown]
  - Suicidal ideation [Unknown]
  - Drug ineffective [Unknown]
  - Anxiety [Unknown]
  - Disturbance in attention [Unknown]
